FAERS Safety Report 9019658 (Version 1)
Quarter: 2013Q1

REPORT INFORMATION
  Report Type: Spontaneous
  Country: CN (occurrence: CN)
  Receive Date: 20130118
  Receipt Date: 20130118
  Transmission Date: 20140127
  Serious: Yes (Hospitalization)
  Sender: FDA-Public Use
  Company Number: CN-PFIZER INC-2013019622

PATIENT
  Age: 14 Year
  Sex: Male

DRUGS (1)
  1. AZITHROMYCIN [Suspect]
     Dosage: 0.25 G, UNK
     Route: 048
     Dates: start: 200904

REACTIONS (1)
  - Hepatic steatosis [Unknown]
